FAERS Safety Report 9752061 (Version 2)
Quarter: 2013Q4

REPORT INFORMATION
  Report Type: Spontaneous
  Country: CZ (occurrence: CZ)
  Receive Date: 20131213
  Receipt Date: 20131226
  Transmission Date: 20140711
  Serious: Yes (Disabling, Other)
  Sender: FDA-Public Use
  Company Number: CZ-AMGEN-CZESP2013086460

PATIENT
  Age: 63 Year
  Sex: Female
  Weight: 66 kg

DRUGS (1)
  1. PROLIA [Suspect]
     Indication: OSTEOPOROSIS POSTMENOPAUSAL
     Dosage: 60 MG, Q6MO
     Route: 058
     Dates: start: 20111111

REACTIONS (4)
  - Oral disorder [Unknown]
  - Primary sequestrum [Not Recovered/Not Resolved]
  - Periostitis [Unknown]
  - Osteonecrosis of jaw [Recovering/Resolving]
